FAERS Safety Report 11308013 (Version 2)
Quarter: 2016Q1

REPORT INFORMATION
  Report Type: Spontaneous
  Country: DE (occurrence: DE)
  Receive Date: 20150724
  Receipt Date: 20160322
  Transmission Date: 20160525
  Serious: Yes (Other)
  Sender: FDA-Public Use
  Company Number: DE-AMGEN-DEUSP2015067733

PATIENT
  Age: 52 Year
  Sex: Male

DRUGS (4)
  1. SODERM [Concomitant]
     Dosage: UNK
  2. ENBREL [Suspect]
     Active Substance: ETANERCEPT
     Indication: PSORIATIC ARTHROPATHY
     Dosage: 50 MG, WEEKLY
     Route: 065
     Dates: start: 20150512, end: 20150630
  3. DAIVONEX [Concomitant]
     Active Substance: CALCIPOTRIENE
     Dosage: UNK
  4. ENBREL [Suspect]
     Active Substance: ETANERCEPT
     Dosage: 50 MG, WEEKLY
     Route: 065

REACTIONS (9)
  - Product quality issue [Not Recovered/Not Resolved]
  - Ligament disorder [Unknown]
  - Arthropathy [Unknown]
  - Pruritus generalised [Recovered/Resolved]
  - Skin plaque [Not Recovered/Not Resolved]
  - Injection site haemorrhage [Not Recovered/Not Resolved]
  - Drug ineffective [Not Recovered/Not Resolved]
  - Chondropathy [Unknown]
  - Meniscus injury [Unknown]

NARRATIVE: CASE EVENT DATE: 2015
